FAERS Safety Report 23563378 (Version 6)
Quarter: 2025Q1

REPORT INFORMATION
  Report Type: Spontaneous
  Country: US (occurrence: US)
  Receive Date: 20240226
  Receipt Date: 20250108
  Transmission Date: 20250408
  Serious: No
  Sender: SANOFI AVENTIS
  Company Number: US-SA-SAC20240221001121

PATIENT
  Age: 29 Year
  Sex: Female

DRUGS (3)
  1. DUPIXENT [Suspect]
     Active Substance: DUPILUMAB
     Indication: Dermatitis atopic
     Route: 058
     Dates: start: 202110, end: 202110
  2. DUPIXENT [Suspect]
     Active Substance: DUPILUMAB
     Indication: Eczema
     Dosage: 300 MG, QOW
     Route: 058
     Dates: start: 2021
  3. DUPIXENT [Suspect]
     Active Substance: DUPILUMAB
     Dosage: 300 MG, QOW
     Route: 058
     Dates: start: 20240122

REACTIONS (28)
  - Influenza [Unknown]
  - Pyrexia [Unknown]
  - Aphonia [Unknown]
  - Contusion [Unknown]
  - Pain [Unknown]
  - Menstruation delayed [Not Recovered/Not Resolved]
  - Injection site urticaria [Recovered/Resolved]
  - Discomfort [Unknown]
  - Dry skin [Unknown]
  - Vision blurred [Unknown]
  - Nasopharyngitis [Unknown]
  - Dizziness [Unknown]
  - Injection site rash [Recovered/Resolved]
  - Dry eye [Not Recovered/Not Resolved]
  - Injection site pain [Recovered/Resolved]
  - Injection site swelling [Recovering/Resolving]
  - Injection site erythema [Recovering/Resolving]
  - Eczema [Not Recovered/Not Resolved]
  - Rash [Not Recovered/Not Resolved]
  - Pruritus [Not Recovered/Not Resolved]
  - Erythema [Not Recovered/Not Resolved]
  - Skin exfoliation [Not Recovered/Not Resolved]
  - Skin weeping [Not Recovered/Not Resolved]
  - Eyelid skin dryness [Recovering/Resolving]
  - Therapeutic response shortened [Unknown]
  - Injection site pain [Unknown]
  - Pruritus [Recovered/Resolved]
  - Therapeutic response shortened [Recovered/Resolved]

NARRATIVE: CASE EVENT DATE: 20220201
